FAERS Safety Report 21006766 (Version 1)
Quarter: 2022Q2

REPORT INFORMATION
  Report Type: Spontaneous
  Country: US (occurrence: US)
  Receive Date: 20220625
  Receipt Date: 20220625
  Transmission Date: 20220720
  Serious: No
  Sender: FDA-Public Use
  Company Number: US-BRISTOL-MYERS SQUIBB COMPANY-2022-060171

PATIENT
  Age: 71 Year
  Sex: Male
  Weight: 95.254 kg

DRUGS (1)
  1. POMALYST [Suspect]
     Active Substance: POMALIDOMIDE
     Indication: Plasma cell myeloma
     Dosage: DAILY FOR 21 DAYS ON 7 DAYS OFF
     Route: 048
     Dates: start: 202110

REACTIONS (1)
  - Thyroid disorder [Unknown]
